FAERS Safety Report 7113428-6 (Version None)
Quarter: 2010Q4

REPORT INFORMATION
  Report Type: 
  Country: None (occurrence: None)
  Receive Date: 20101119
  Receipt Date: 20101109
  Transmission Date: 20110411
  Serious: Yes (Hospitalization, Disabling)
  Sender: FDA-Public Use
  Company Number: GB-SANOFI-AVENTIS-2010SA068572

PATIENT
  Age: 89 Year
  Sex: Male

DRUGS (3)
  1. CLOPIDOGREL BISULFATE [Suspect]
     Indication: ACUTE CORONARY SYNDROME
     Route: 048
  2. ASPIRIN [Suspect]
     Indication: ACUTE CORONARY SYNDROME
  3. HEPARIN SODIUM [Suspect]
     Indication: ACUTE CORONARY SYNDROME

REACTIONS (5)
  - DISABILITY [None]
  - HAEMOGLOBIN DECREASED [None]
  - PERIPHERAL ARTERY ANEURYSM [None]
  - RETROPERITONEAL HAEMORRHAGE [None]
  - SCIATICA [None]
